FAERS Safety Report 17284520 (Version 1)
Quarter: 2020Q1

REPORT INFORMATION
  Report Type: Spontaneous
  Country: US (occurrence: US)
  Receive Date: 20200117
  Receipt Date: 20200117
  Transmission Date: 20200409
  Serious: Yes (Life-Threatening, Hospitalization, Other)
  Sender: FDA-Public Use
  Company Number: US-SA-2020SA013984

PATIENT
  Age: 49 Year
  Sex: Male

DRUGS (1)
  1. SOLIQUA 100/33 [Suspect]
     Active Substance: INSULIN GLARGINE\LIXISENATIDE
     Dosage: 60 IU, QD (AM)
     Route: 065
     Dates: start: 20190625, end: 20191231

REACTIONS (2)
  - Renal failure [Recovered/Resolved]
  - Unresponsive to stimuli [Recovered/Resolved]
